FAERS Safety Report 24790024 (Version 1)
Quarter: 2024Q4

REPORT INFORMATION
  Report Type: Spontaneous
  Country: US (occurrence: None)
  Receive Date: 20241230
  Receipt Date: 20241230
  Transmission Date: 20250115
  Serious: Yes (Hospitalization)
  Sender: Public
  Company Number: None

PATIENT
  Age: 62 Year
  Sex: Female

DRUGS (1)
  1. LENALIDOMIDE [Suspect]
     Active Substance: LENALIDOMIDE
     Indication: Multiple sclerosis
     Dosage: FREQUENCY : DAILY;?

REACTIONS (4)
  - Fall [None]
  - Diarrhoea [None]
  - Fatigue [None]
  - Fatigue [None]
